FAERS Safety Report 4919805-3 (Version None)
Quarter: 2006Q1

REPORT INFORMATION
  Report Type: 
  Country: None (occurrence: None)
  Receive Date: 20060217
  Receipt Date: 20060210
  Transmission Date: 20060701
  Serious: Yes (Hospitalization)
  Sender: FDA-Public Use
  Company Number: 13436

PATIENT
  Age: 64 Year
  Sex: Female
  Weight: 65 kg

DRUGS (6)
  1. CARBOPLATIN [Suspect]
     Indication: OVARIAN CANCER
     Dosage: 490 MG
  2. PRAZEPAM [Concomitant]
  3. LEVOTHYROX [Concomitant]
  4. IMOVANE [Concomitant]
  5. XANAX [Concomitant]
  6. NEXIUM [Concomitant]

REACTIONS (6)
  - ABDOMINAL PAIN [None]
  - EMOTIONAL DISTRESS [None]
  - HOT FLUSH [None]
  - INFUSION RELATED REACTION [None]
  - MALAISE [None]
  - SHOCK [None]
